FAERS Safety Report 8018925-7 (Version None)
Quarter: 2012Q1

REPORT INFORMATION
  Report Type: 
  Country: None (occurrence: None)
  Receive Date: 20120103
  Receipt Date: 20111227
  Transmission Date: 20120608
  Serious: Yes (Life-Threatening, Hospitalization)
  Sender: FDA-Public Use
  Company Number: US-BAYER-2011-062475

PATIENT
  Age: 29 Year
  Sex: Female
  Weight: 81.633 kg

DRUGS (2)
  1. YASMIN [Suspect]
     Indication: CONTRACEPTION
     Dosage: UNK
     Dates: start: 20060101, end: 20070101
  2. YAZ [Suspect]
     Indication: CONTRACEPTION
     Dosage: UNK
     Dates: start: 20070101, end: 20100101

REACTIONS (9)
  - GALLBLADDER NON-FUNCTIONING [None]
  - ORGAN FAILURE [None]
  - PAIN [None]
  - CHOLECYSTITIS CHRONIC [None]
  - FATIGUE [None]
  - ANXIETY [None]
  - ANHEDONIA [None]
  - ASTHENIA [None]
  - GENERAL PHYSICAL HEALTH DETERIORATION [None]
